FAERS Safety Report 6533087-0 (Version None)
Quarter: 2010Q1

REPORT INFORMATION
  Report Type: 
  Country: None (occurrence: None)
  Receive Date: 20100111
  Receipt Date: 20100105
  Transmission Date: 20100710
  Serious: Yes (Other)
  Sender: FDA-Public Use
  Company Number: NL-AMGEN-US384359

PATIENT
  Age: 64 Year
  Sex: Male

DRUGS (6)
  1. ENBREL [Suspect]
     Indication: DRUG USE FOR UNKNOWN INDICATION
     Dates: start: 20090930, end: 20100104
  2. ENBREL [Suspect]
     Dates: end: 20100104
  3. PREDNISOLONE [Concomitant]
  4. TRAMADOL HCL [Concomitant]
  5. NEXIUM [Concomitant]
  6. DICLOFENAC SODIUM [Concomitant]

REACTIONS (2)
  - SURGERY [None]
  - SWELLING [None]
